FAERS Safety Report 10347944 (Version 2)
Quarter: 2014Q3

REPORT INFORMATION
  Report Type: Spontaneous
  Country: BR (occurrence: BR)
  Receive Date: 20140729
  Receipt Date: 20140729
  Transmission Date: 20150326
  Serious: Yes (Hospitalization)
  Sender: FDA-Public Use
  Company Number: BR-ABBVIE-14P-020-1263512-00

PATIENT
  Age: 76 Year
  Sex: Female

DRUGS (2)
  1. DEPAKOTE [Suspect]
     Active Substance: DIVALPROEX SODIUM
     Indication: SCHIZOPHRENIA
  2. DEPAKOTE [Suspect]
     Active Substance: DIVALPROEX SODIUM
     Indication: DEPRESSION
     Dosage: 3000MG; DURING BREAKFAST, LUNCH AND DINNER
     Route: 048
     Dates: start: 200908, end: 20140716

REACTIONS (5)
  - Poisoning [Recovering/Resolving]
  - Product physical issue [Unknown]
  - Malaise [Unknown]
  - Product colour issue [Unknown]
  - Off label use [Unknown]

NARRATIVE: CASE EVENT DATE: 20140717
